FAERS Safety Report 5900815-4 (Version None)
Quarter: 2008Q3

REPORT INFORMATION
  Report Type: 
  Country: None (occurrence: None)
  Receive Date: 20080929
  Receipt Date: 20080831
  Transmission Date: 20090109
  Serious: Yes (Life-Threatening, Hospitalization, Other)
  Sender: FDA-Public Use
  Company Number: HQWYE600112SEP06

PATIENT
  Age: 32 Year
  Sex: Male
  Weight: 57 kg

DRUGS (2)
  1. RAPAMUNE [Suspect]
     Indication: PROPHYLAXIS AGAINST TRANSPLANT REJECTION
     Route: 048
     Dates: start: 20060707, end: 20060826
  2. RAPAMUNE [Suspect]
     Route: 048
     Dates: start: 20060827

REACTIONS (2)
  - HAEMOTHORAX [None]
  - PLEURAL EFFUSION [None]
